FAERS Safety Report 13238745 (Version 1)
Quarter: 2017Q1

REPORT INFORMATION
  Report Type: Spontaneous
  Country: US (occurrence: US)
  Receive Date: 20170216
  Receipt Date: 20170216
  Transmission Date: 20170428
  Serious: Yes (Other)
  Sender: FDA-Public Use
  Company Number: US-CLINIGEN GROUP PLC/ CLINIGEN HEALTHCARE LTD-E2B_00001603

PATIENT
  Age: 72 Year
  Sex: Female

DRUGS (9)
  1. KYTRIL [Concomitant]
     Active Substance: GRANISETRON HYDROCHLORIDE
     Dosage: 1 MG 1 DAY(S)
     Route: 042
     Dates: start: 19971218, end: 19971218
  2. DECADRON [Concomitant]
     Active Substance: DEXAMETHASONE
     Dosage: 20 MG 1 DAY(S)
     Route: 042
     Dates: start: 19971218, end: 19971218
  3. BENADRYL [Concomitant]
     Active Substance: DIPHENHYDRAMINE HYDROCHLORIDE
     Dosage: 12.5 MG 1 DAY(S)
     Route: 042
     Dates: start: 19971218, end: 19971218
  4. LEUCOVORIN. [Concomitant]
     Active Substance: LEUCOVORIN
     Dosage: 400 MG 1 DAY(S)
     Route: 042
     Dates: start: 19971218, end: 19971218
  5. 5-FU [Concomitant]
     Active Substance: FLUOROURACIL
     Dosage: 650 MG 1 DAY(S)
     Route: 042
     Dates: start: 19971218, end: 19971218
  6. ETHYOL [Suspect]
     Active Substance: AMIFOSTINE
     Indication: ADVERSE DRUG REACTION
     Dosage: 1000 MG 1 DAY(S)
     Route: 042
     Dates: start: 19971218, end: 19971218
  7. ZANTAC [Concomitant]
     Active Substance: RANITIDINE HYDROCHLORIDE
     Dosage: 50 MG 1 DAY(S)
     Route: 042
     Dates: start: 19971218, end: 19971218
  8. ADRIAMYCIN [Concomitant]
     Active Substance: DOXORUBICIN HYDROCHLORIDE
     Dosage: 80 MG 1 DAY(S)
     Route: 042
     Dates: start: 19971218, end: 19971218
  9. TAXOTERE [Suspect]
     Active Substance: DOCETAXEL
     Indication: GASTRIC CANCER
     Dosage: 120 MG 1 DAY(S)
     Route: 042
     Dates: start: 19971218, end: 19971218

REACTIONS (8)
  - Hypoxia [Unknown]
  - Obstructive airways disorder [Unknown]
  - Tachycardia [Unknown]
  - Flushing [Unknown]
  - Paraesthesia [Unknown]
  - Nonspecific reaction [Unknown]
  - Hypotension [Unknown]
  - Hypersensitivity [Recovered/Resolved]

NARRATIVE: CASE EVENT DATE: 19971218
